FAERS Safety Report 8290063-8 (Version None)
Quarter: 2012Q2

REPORT INFORMATION
  Report Type: 
  Country: None (occurrence: None)
  Receive Date: 20120412
  Receipt Date: 20120412
  Transmission Date: 20120825
  Serious: Yes (Hospitalization)
  Sender: FDA-Public Use
  Company Number: None

PATIENT
  Sex: Female
  Weight: 84 kg

DRUGS (1)
  1. CISPLATIN [Suspect]
     Dosage: 74 MG

REACTIONS (9)
  - CHILLS [None]
  - PYREXIA [None]
  - APHAGIA [None]
  - ESCHERICHIA TEST POSITIVE [None]
  - DYSURIA [None]
  - HYPERHIDROSIS [None]
  - ASTHENIA [None]
  - FATIGUE [None]
  - HYDRONEPHROSIS [None]
